FAERS Safety Report 19607361 (Version 1)
Quarter: 2021Q3

REPORT INFORMATION
  Report Type: Spontaneous
  Country: CA (occurrence: CA)
  Receive Date: 20210726
  Receipt Date: 20210726
  Transmission Date: 20211014
  Serious: Yes (Hospitalization)
  Sender: FDA-Public Use
  Company Number: CA-ROCHE-2875041

PATIENT
  Age: 38 Year
  Sex: Female

DRUGS (20)
  1. CALCIUM CARBONATE. [Concomitant]
     Active Substance: CALCIUM CARBONATE
     Route: 048
  2. FOLIC ACID. [Concomitant]
     Active Substance: FOLIC ACID
     Route: 048
  3. HEPARIN [Concomitant]
     Active Substance: HEPARIN SODIUM
     Route: 065
  4. ACETAMINOPHEN. [Concomitant]
     Active Substance: ACETAMINOPHEN
     Route: 065
  5. CALCIUM [Concomitant]
     Active Substance: CALCIUM
  6. DICLOFENAC DIETHYLAMINE [Concomitant]
     Active Substance: DICLOFENAC DIETHYLAMINE
  7. PANTOPRAZOLE [Concomitant]
     Active Substance: PANTOPRAZOLE
     Route: 048
  8. RISEDRONATE [Concomitant]
     Active Substance: RISEDRONATE SODIUM
     Route: 048
  9. RISEDRONATE SODIUM. [Concomitant]
     Active Substance: RISEDRONATE SODIUM
  10. VITAMIN B COMPLEX [Concomitant]
     Active Substance: CYANOCOBALAMIN\DEXPANTHENOL\NIACINAMIDE\PYRIDOXINE HYDROCHLORIDE\RIBOFLAVIN 5^-PHOSPHATE SODIUM\THIAMINE HYDROCHLORIDE\VITAMIN B COMPLEX
  11. RITUXIMAB. [Suspect]
     Active Substance: RITUXIMAB
     Indication: LUPUS NEPHRITIS
     Route: 065
  12. MYCOPHENOLATE MOFETIL. [Suspect]
     Active Substance: MYCOPHENOLATE MOFETIL
     Indication: SYSTEMIC LUPUS ERYTHEMATOSUS
     Route: 048
  13. PREDNISONE. [Concomitant]
     Active Substance: PREDNISONE
  14. SODIUM BICARBONATE. [Concomitant]
     Active Substance: SODIUM BICARBONATE
     Route: 048
  15. FERROUS FUMARATE [Concomitant]
     Active Substance: FERROUS FUMARATE
     Route: 065
  16. IRON [Concomitant]
     Active Substance: IRON
  17. TRETINOIN. [Concomitant]
     Active Substance: TRETINOIN
  18. DARBEPOETIN ALFA [Concomitant]
     Active Substance: DARBEPOETIN ALFA
     Route: 058
  19. VITAMIN C [Concomitant]
     Active Substance: ASCORBIC ACID
     Route: 048
  20. ZINC OXIDE. [Concomitant]
     Active Substance: ZINC OXIDE
     Route: 065

REACTIONS (29)
  - Bicytopenia [Unknown]
  - Blood creatinine increased [Unknown]
  - Chronic kidney disease [Unknown]
  - Lymphocyte count decreased [Unknown]
  - Myalgia [Unknown]
  - Proteinuria [Unknown]
  - Serum ferritin abnormal [Unknown]
  - Diarrhoea [Unknown]
  - Gastrointestinal haemorrhage [Unknown]
  - Product use in unapproved indication [Unknown]
  - Haematocrit decreased [Unknown]
  - Red blood cell sedimentation rate increased [Unknown]
  - Asymptomatic bacteriuria [Unknown]
  - Blood pressure increased [Unknown]
  - Cushingoid [Unknown]
  - Hypoalbuminaemia [Unknown]
  - Vomiting [Unknown]
  - Asthenia [Unknown]
  - Therapy partial responder [Unknown]
  - Transferrin saturation abnormal [Unknown]
  - Haemoglobin decreased [Unknown]
  - Kidney fibrosis [Unknown]
  - Mean cell volume increased [Unknown]
  - Oedema peripheral [Unknown]
  - Intentional product use issue [Unknown]
  - Creatinine renal clearance abnormal [Unknown]
  - Drug eruption [Unknown]
  - Nausea [Unknown]
  - Off label use [Unknown]
